FAERS Safety Report 6893469-4 (Version None)
Quarter: 2010Q3

REPORT INFORMATION
  Report Type: 
  Country: None (occurrence: None)
  Receive Date: 20100731
  Receipt Date: 20090916
  Transmission Date: 20110219
  Serious: Yes (Hospitalization, Other)
  Sender: FDA-Public Use
  Company Number: US-PFIZER INC-2009239230

PATIENT
  Sex: Female
  Weight: 62.132 kg

DRUGS (7)
  1. NEURONTIN [Suspect]
     Indication: PAIN
     Dosage: 800 MG, 4X/DAY
     Route: 048
     Dates: start: 19990101
  2. ATIVAN [Concomitant]
     Indication: ANXIETY
     Route: 048
  3. ZOLOFT [Concomitant]
     Indication: DEPRESSION
     Route: 048
  4. TRAZODONE [Concomitant]
     Indication: DEPRESSION
     Route: 048
  5. LUNESTA [Concomitant]
     Route: 048
  6. SEROQUEL [Concomitant]
     Route: 048
  7. CANDESARTAN [Concomitant]

REACTIONS (5)
  - ADDISON'S DISEASE [None]
  - DEPRESSION [None]
  - MALAISE [None]
  - SUICIDE ATTEMPT [None]
  - WEIGHT INCREASED [None]
